FAERS Safety Report 9291044 (Version 2)
Quarter: 2013Q2

REPORT INFORMATION
  Report Type: Spontaneous
  Country: US (occurrence: US)
  Receive Date: 20130515
  Receipt Date: 20130621
  Transmission Date: 20140414
  Serious: No
  Sender: FDA-Public Use
  Company Number: US-009507513-1305USA008307

PATIENT
  Age: 70 Year
  Sex: Female

DRUGS (1)
  1. COSOPT [Suspect]
     Dosage: UNK
     Route: 047

REACTIONS (2)
  - Eye colour change [Unknown]
  - Growth of eyelashes [Unknown]
